FAERS Safety Report 18651947 (Version 9)
Quarter: 2021Q3

REPORT INFORMATION
  Report Type: Report from Study
  Country: None (occurrence: US)
  Receive Date: 20201223
  Receipt Date: 20210811
  Transmission Date: 20211014
  Serious: Yes (Hospitalization, Other)
  Sender: FDA-Public Use
  Company Number: US-ABBVIE-20K-163-3696646-00

PATIENT
  Age: 69 Year
  Sex: Female
  Weight: 106.24 kg

DRUGS (28)
  1. LUTEIN [Concomitant]
     Active Substance: LUTEIN
     Indication: MACULAR DEGENERATION
  2. ELIQUIS [Concomitant]
     Active Substance: APIXABAN
     Indication: PRODUCT USED FOR UNKNOWN INDICATION
  3. CETRIZINE [Concomitant]
     Active Substance: CETIRIZINE HYDROCHLORIDE
     Indication: HYPERSENSITIVITY
  4. OZEMPIC [Concomitant]
     Active Substance: SEMAGLUTIDE
     Indication: TYPE 2 DIABETES MELLITUS
  5. COVID?19 VACCINE [Concomitant]
     Indication: COVID-19 IMMUNISATION
     Dosage: MODERNA
     Route: 030
     Dates: start: 20210210, end: 20210210
  6. MAGNESIUM [Concomitant]
     Active Substance: MAGNESIUM
     Indication: HYPOMAGNESAEMIA
  7. VITAMIN D3 [Concomitant]
     Active Substance: CHOLECALCIFEROL
     Indication: IMMUNE DISORDER PROPHYLAXIS
  8. COVID?19 VACCINE [Concomitant]
     Dosage: MODERNA
     Route: 030
     Dates: start: 20210312, end: 20210312
  9. HUMIRA [Suspect]
     Active Substance: ADALIMUMAB
     Indication: CROHN^S DISEASE
     Dosage: CF
     Route: 058
     Dates: start: 20210115, end: 2021
  10. METOPROLOL SUCCINATE. [Concomitant]
     Active Substance: METOPROLOL SUCCINATE
     Indication: TACHYCARDIA
  11. APAP [Concomitant]
     Active Substance: ACETAMINOPHEN
     Indication: NEUROPATHY PERIPHERAL
  12. OXYCODON [Concomitant]
     Active Substance: OXYCODONE
     Indication: PAIN
  13. IRON [Concomitant]
     Active Substance: IRON
     Indication: ANAEMIA
  14. HUMIRA [Suspect]
     Active Substance: ADALIMUMAB
     Indication: COLITIS ULCERATIVE
     Dosage: CF
     Route: 058
     Dates: start: 2017, end: 20201216
  15. PANTOPRAZOLE [Concomitant]
     Active Substance: PANTOPRAZOLE
     Indication: GASTROOESOPHAGEAL REFLUX DISEASE
  16. ATORVASTATIN [Concomitant]
     Active Substance: ATORVASTATIN
     Indication: BLOOD CHOLESTEROL INCREASED
  17. VITAMIN C [Concomitant]
     Active Substance: ASCORBIC ACID
     Indication: IMMUNE DISORDER PROPHYLAXIS
  18. GABAPENTIN. [Concomitant]
     Active Substance: GABAPENTIN
     Indication: NEUROPATHY PERIPHERAL
  19. METOPROLOL SUCCINATE. [Concomitant]
     Active Substance: METOPROLOL SUCCINATE
     Indication: HYPERTENSION
  20. CITALOPRAM [Concomitant]
     Active Substance: CITALOPRAM HYDROBROMIDE
     Indication: ANXIETY
  21. HUMIRA [Suspect]
     Active Substance: ADALIMUMAB
     Dosage: CF
     Route: 058
  22. LEVOTHYROXINE. [Concomitant]
     Active Substance: LEVOTHYROXINE
     Indication: HYPOTHYROIDISM
  23. LOSARTAN. [Concomitant]
     Active Substance: LOSARTAN
     Indication: HYPERTENSION
  24. NIACIN. [Concomitant]
     Active Substance: NIACIN
     Indication: BLOOD CHOLESTEROL INCREASED
  25. ROPINIROLE. [Concomitant]
     Active Substance: ROPINIROLE
     Indication: RESTLESS LEGS SYNDROME
  26. AMILORIDE [Concomitant]
     Active Substance: AMILORIDE
     Indication: OEDEMA
  27. ASPIRIN. [Concomitant]
     Active Substance: ASPIRIN
     Indication: PRODUCT USED FOR UNKNOWN INDICATION
     Dosage: LOW DOSE
  28. NOVOLIN R [Concomitant]
     Active Substance: INSULIN HUMAN
     Indication: BLOOD GLUCOSE ABNORMAL

REACTIONS (35)
  - Gastrointestinal disorder [Unknown]
  - Osteoma [Not Recovered/Not Resolved]
  - Nerve injury [Not Recovered/Not Resolved]
  - Haemoglobin decreased [Recovered/Resolved]
  - Wrist fracture [Recovering/Resolving]
  - Haemorrhagic cyst [Unknown]
  - Fall [Recovered/Resolved]
  - Post procedural haemorrhage [Unknown]
  - Defaecation urgency [Not Recovered/Not Resolved]
  - Cholecystectomy [Unknown]
  - Diarrhoea haemorrhagic [Recovered/Resolved]
  - Bladder hypertrophy [Unknown]
  - Walking aid user [Not Recovered/Not Resolved]
  - Constipation [Recovering/Resolving]
  - Spinal stenosis [Unknown]
  - Aortic arteriosclerosis [Unknown]
  - Pain [Unknown]
  - Back pain [Recovering/Resolving]
  - Cystitis [Unknown]
  - Uterine hypoplasia [Unknown]
  - Diverticulum intestinal [Unknown]
  - Sinusitis [Recovered/Resolved]
  - Dysphonia [Not Recovered/Not Resolved]
  - Intervertebral disc degeneration [Unknown]
  - Arthritis [Unknown]
  - Pain in extremity [Unknown]
  - Large intestinal haemorrhage [Unknown]
  - Arthralgia [Unknown]
  - Arterial haemorrhage [Unknown]
  - Nasal septum deviation [Not Recovered/Not Resolved]
  - Fall [Unknown]
  - Large intestinal haemorrhage [Recovered/Resolved]
  - Gastrointestinal haemorrhage [Unknown]
  - Gait inability [Not Recovered/Not Resolved]
  - Chronic sinusitis [Recovering/Resolving]

NARRATIVE: CASE EVENT DATE: 20191230
